FAERS Safety Report 6679658-2 (Version None)
Quarter: 2010Q2

REPORT INFORMATION
  Report Type: 
  Country: None (occurrence: None)
  Receive Date: 20100413
  Receipt Date: 20100405
  Transmission Date: 20101027
  Serious: Yes (Hospitalization)
  Sender: FDA-Public Use
  Company Number: B0627421A

PATIENT
  Sex: Female

DRUGS (2)
  1. VALTREX [Suspect]
     Indication: HERPES ZOSTER
     Dosage: 3000MG PER DAY
     Route: 048
     Dates: start: 20091229, end: 20100104
  2. LOXONIN [Concomitant]
     Indication: PAIN
     Route: 048
     Dates: start: 20091229, end: 20100106

REACTIONS (1)
  - RENAL FAILURE [None]
